FAERS Safety Report 7876552-6 (Version None)
Quarter: 2011Q4

REPORT INFORMATION
  Report Type: 
  Country: None (occurrence: None)
  Receive Date: 20111031
  Receipt Date: 20111017
  Transmission Date: 20120403
  Serious: Yes (Hospitalization)
  Sender: FDA-Public Use
  Company Number: US-ELI_LILLY_AND_COMPANY-US201105001998

PATIENT
  Sex: Female
  Weight: 57.596 kg

DRUGS (6)
  1. HUMALOG [Suspect]
     Indication: DIABETES MELLITUS
     Dosage: UNK
  2. HUMULIN R [Suspect]
     Indication: DIABETES MELLITUS
     Dosage: UNK, PRN
     Dates: end: 20110504
  3. HUMALOG MIX 75/25 [Suspect]
     Indication: DIABETES MELLITUS
     Dosage: 28 U, BID
     Route: 065
     Dates: start: 20110505
  4. HUMALOG [Suspect]
     Dosage: 28 U, BID
     Dates: start: 20110505
  5. HUMULIN N [Concomitant]
     Indication: DIABETES MELLITUS
     Dosage: UNK UNK, BID
     Route: 065
     Dates: start: 20110714
  6. INSULIN [Concomitant]
     Indication: DIABETES MELLITUS

REACTIONS (5)
  - FEELING ABNORMAL [None]
  - HOSPITALISATION [None]
  - BLOOD GLUCOSE FLUCTUATION [None]
  - HEADACHE [None]
  - DEPRESSED MOOD [None]
